FAERS Safety Report 12424580 (Version 1)
Quarter: 2016Q2

REPORT INFORMATION
  Report Type: Spontaneous
  Country: US (occurrence: US)
  Receive Date: 20160601
  Receipt Date: 20160601
  Transmission Date: 20160815
  Serious: No
  Sender: FDA-Public Use
  Company Number: US-NOVEN PHARMACEUTICALS, INC.-US2016000190

PATIENT

DRUGS (3)
  1. DAYTRANA [Suspect]
     Active Substance: METHYLPHENIDATE
     Indication: ATTENTION DEFICIT/HYPERACTIVITY DISORDER
     Dosage: 15 MG, UNKNOWN
     Route: 062
     Dates: end: 20160201
  2. CLONIDINE. [Concomitant]
     Active Substance: CLONIDINE
     Indication: INSOMNIA
  3. MELATONIN [Concomitant]
     Active Substance: MELATONIN
     Indication: INSOMNIA

REACTIONS (6)
  - Impulsive behaviour [Unknown]
  - Drug dose omission [Not Recovered/Not Resolved]
  - Psychomotor hyperactivity [Unknown]
  - Disturbance in attention [Unknown]
  - Restlessness [Unknown]
  - Anxiety [Unknown]

NARRATIVE: CASE EVENT DATE: 20160202
